FAERS Safety Report 8847005 (Version 1)
Quarter: 2012Q4

REPORT INFORMATION
  Report Type: 
  Country: FR (occurrence: FR)
  Receive Date: 20121018
  Receipt Date: 20121018
  Transmission Date: 20130627
  Serious: Yes (Hospitalization)
  Sender: FDA-Public Use
  Company Number: FR-PFIZER INC-2012252597

PATIENT
  Age: 67 Year
  Sex: Female

DRUGS (20)
  1. DOXORUBICIN [Suspect]
     Indication: MULTIPLE MYELOMA
     Dosage: 16.1 mg/24h, (9 mg/m2) 1x/day
     Route: 041
     Dates: start: 20070219, end: 20070702
  2. ONCOVIN [Suspect]
     Indication: MULTIPLE MYELOMA
     Dosage: 0.4 mg/24h, 1x/day
     Dates: start: 20070219, end: 20070702
  3. DECADRON [Suspect]
     Indication: MULTIPLE MYELOMA
     Dosage: UNK
     Dates: start: 20070219, end: 20070702
  4. DECADRON [Suspect]
     Dosage: UNK
     Dates: start: 20070731, end: 20070911
  5. VELCADE [Suspect]
     Indication: MULTIPLE MYELOMA
     Dosage: 2.34 mg, (1.3 mg/m2)
     Dates: start: 20070731, end: 20070911
  6. DEXAMETHASONE [Suspect]
     Indication: MULTIPLE MYELOMA
     Dosage: UNK
  7. REVLIMID [Suspect]
     Indication: MULTIPLE MYELOMA
     Dosage: 5 mg, thrice per week
     Route: 048
     Dates: start: 20110610
  8. REVLIMID [Suspect]
     Dosage: 5 mg, 2x/week
     Route: 048
     Dates: start: 20120719
  9. MELPHALAN [Suspect]
     Indication: MULTIPLE MYELOMA
     Dosage: 255 mg, UNK
     Route: 042
     Dates: start: 20071123
  10. HYPERIUM [Concomitant]
     Indication: BLOOD PRESSURE
     Dosage: 1 mg, 1x/day
  11. LASILIX [Concomitant]
     Indication: HYPERTENSION
     Dosage: 40 mg, 1x/day
  12. ARANESP [Concomitant]
     Dosage: 80 ug, monthly
  13. ARANESP [Concomitant]
     Dosage: 60 ug, every 15 days
  14. ARANESP [Concomitant]
     Dosage: 40 ug, every 15 days
     Dates: start: 2010
  15. UN-ALFA [Concomitant]
     Dosage: UNK
  16. KAYEXALATE [Concomitant]
     Dosage: UNK, twice per week
  17. AREDIA [Concomitant]
     Route: 042
  18. RENAGEL [Concomitant]
     Dosage: 1 DF, 1x/day
     Dates: start: 2009
  19. CALCIDIA [Concomitant]
     Dosage: UNK
     Dates: start: 2011
  20. SPECIAFOLDINE [Concomitant]
     Indication: HYPERHOMOCYSTEINAEMIA
     Dosage: UNK
     Dates: end: 201002

REACTIONS (2)
  - Second primary malignancy [Not Recovered/Not Resolved]
  - Malignant melanoma [Not Recovered/Not Resolved]
